FAERS Safety Report 6527203-4 (Version None)
Quarter: 2009Q4

REPORT INFORMATION
  Report Type: 
  Country: None (occurrence: None)
  Receive Date: 20091222
  Receipt Date: 20091023
  Transmission Date: 20100525
  Serious: No
  Sender: FDA-Public Use
  Company Number: ALL1-2009-03338

PATIENT
  Age: 8 Year
  Sex: Female

DRUGS (2)
  1. VYVANSE [Suspect]
     Indication: ATTENTION DEFICIT/HYPERACTIVITY DISORDER
     Dosage: 20 MG, 1X/DAY:QD, ORAL
     Route: 048
     Dates: start: 20091003
  2. PROZAC [Concomitant]

REACTIONS (2)
  - DRUG EFFECT DECREASED [None]
  - PHARYNGITIS STREPTOCOCCAL [None]
